FAERS Safety Report 22284832 (Version 1)
Quarter: 2023Q2

REPORT INFORMATION
  Report Type: Spontaneous
  Country: US (occurrence: None)
  Receive Date: 20230503
  Receipt Date: 20230503
  Transmission Date: 20230721
  Serious: Yes (Hospitalization)
  Sender: FDA-Public Use
  Company Number: None

PATIENT
  Age: 41 Year
  Sex: Female

DRUGS (9)
  1. ENVARSUS XR [Suspect]
     Active Substance: TACROLIMUS
     Indication: Immunosuppression
     Dosage: FREQUENCY : DAILY;?
     Route: 048
     Dates: start: 20220901
  2. Sodium bicarbonate 10mg [Concomitant]
  3. PREDNISONE [Concomitant]
     Active Substance: PREDNISONE
     Dates: start: 20220901
  4. Mycophenolic DR 180mg [Concomitant]
     Dates: start: 20220901
  5. NORETHINDRONE [Concomitant]
     Active Substance: NORETHINDRONE
  6. Biotin 1000mcg [Concomitant]
  7. Humalog 100units/ml kwikpen [Concomitant]
  8. Lantus 100 units/ml solostar pen [Concomitant]
  9. mag-oxide 400mg [Concomitant]

REACTIONS (1)
  - Blood glucose increased [None]

NARRATIVE: CASE EVENT DATE: 20230327
